FAERS Safety Report 15944132 (Version 1)
Quarter: 2019Q1

REPORT INFORMATION
  Report Type: Spontaneous
  Country: AT (occurrence: AT)
  Receive Date: 20190211
  Receipt Date: 20190211
  Transmission Date: 20190417
  Serious: Yes (Other)
  Sender: FDA-Public Use
  Company Number: AT-DEXPHARM-20190057

PATIENT
  Sex: Male

DRUGS (2)
  1. CHLORHEXAMED GEL 1% DENTAL GEL [Suspect]
     Active Substance: CHLORHEXIDINE GLUCONATE
     Indication: POST PROCEDURAL INFLAMMATION
     Dosage: UNK, 2%  (APODENT)
     Route: 048
  2. CHLORHEXIDINE [Suspect]
     Active Substance: CHLORHEXIDINE
     Indication: PRODUCT USED FOR UNKNOWN INDICATION
     Dosage: UNK, 2%  (APODENT)
     Route: 048

REACTIONS (3)
  - Anaphylactic reaction [Recovered/Resolved]
  - Drug intolerance [Recovered/Resolved]
  - Burning sensation [Recovered/Resolved]
